FAERS Safety Report 11941365 (Version 2)
Quarter: 2017Q3

REPORT INFORMATION
  Report Type: Spontaneous
  Country: US (occurrence: US)
  Receive Date: 20160122
  Receipt Date: 20170929
  Transmission Date: 20171127
  Serious: Yes (Hospitalization, Other)
  Sender: FDA-Public Use
  Company Number: US-DSJP-DSU-2015-133598

PATIENT

DRUGS (4)
  1. BENICAR [Suspect]
     Active Substance: OLMESARTAN MEDOXOMIL
     Dosage: 10 MG, QD
  2. BENICAR [Suspect]
     Active Substance: OLMESARTAN MEDOXOMIL
     Indication: HYPERTENSION
     Dosage: UNK
     Dates: start: 2013
  3. BENICAR [Suspect]
     Active Substance: OLMESARTAN MEDOXOMIL
     Dosage: 5 MG, QD
  4. BENICAR HCT [Suspect]
     Active Substance: HYDROCHLOROTHIAZIDE\OLMESARTAN MEDOXOMIL
     Indication: HYPERTENSION
     Dosage: 5 MG, UNK
     Dates: start: 2012, end: 2014

REACTIONS (14)
  - Hypocalcaemia [Unknown]
  - Enteritis [Unknown]
  - Hiatus hernia [Unknown]
  - Pneumoperitoneum [Recovered/Resolved]
  - Jejunal stenosis [Unknown]
  - Gastrooesophageal reflux disease [Unknown]
  - Intestinal stenosis [Unknown]
  - Acute kidney injury [Unknown]
  - Laparoscopy [Unknown]
  - Malabsorption [Unknown]
  - Bile duct stenosis [Unknown]
  - Metabolic surgery [Unknown]
  - Pancreatic duct dilatation [Unknown]
  - Polyp [Unknown]

NARRATIVE: CASE EVENT DATE: 201209
